FAERS Safety Report 24297888 (Version 4)
Quarter: 2024Q4

REPORT INFORMATION
  Report Type: Spontaneous
  Country: AT (occurrence: AT)
  Receive Date: 20240909
  Receipt Date: 20241113
  Transmission Date: 20250115
  Serious: Yes (Hospitalization, Other)
  Sender: BIOVITRUM
  Company Number: AT-BIOVITRUM-2024-AT-011741

PATIENT
  Age: 61 Year
  Sex: Female

DRUGS (1)
  1. DOPTELET [Suspect]
     Active Substance: AVATROMBOPAG MALEATE
     Indication: Immune thrombocytopenia
     Dosage: DAILY?TAKEN TOTAL 7 TABLET
     Dates: start: 20240716, end: 20240722

REACTIONS (5)
  - Nausea [Unknown]
  - Vomiting [Unknown]
  - Acute kidney injury [Not Recovered/Not Resolved]
  - Troponin increased [Unknown]
  - Cerebral microangiopathy [Not Recovered/Not Resolved]

NARRATIVE: CASE EVENT DATE: 20240724
